FAERS Safety Report 9588296 (Version 1)
Quarter: 2013Q4

REPORT INFORMATION
  Report Type: Spontaneous
  Country: US (occurrence: US)
  Receive Date: 20131003
  Receipt Date: 20131003
  Transmission Date: 20140711
  Serious: No
  Sender: FDA-Public Use
  Company Number: US-AMGEN-USASP2012063704

PATIENT
  Age: 54 Year
  Sex: Female
  Weight: 81.18 kg

DRUGS (8)
  1. ENBREL [Suspect]
     Indication: RHEUMATOID ARTHRITIS
     Dosage: 50 MG, QWK
     Route: 058
  2. PROGESTERONE [Concomitant]
     Dosage: 100 MG, UNK
  3. ESTRADIOL [Concomitant]
     Dosage: 0.025 MG, UNK
  4. BUPROPION [Concomitant]
     Dosage: 75 MG, UNK
  5. FLUOXETINE [Concomitant]
     Dosage: 10 MG, UNK
  6. FISH OIL [Concomitant]
     Dosage: UNK
  7. VITAMIN D                          /00107901/ [Concomitant]
     Dosage: 400, UNK, UNK
  8. MULTIVITAMINS, PLAIN [Concomitant]
     Dosage: UNK

REACTIONS (5)
  - Nausea [Unknown]
  - Injection site reaction [Unknown]
  - Injection site pruritus [Unknown]
  - Injection site swelling [Unknown]
  - Injection site erythema [Unknown]
